FAERS Safety Report 13834388 (Version 2)
Quarter: 2017Q3

REPORT INFORMATION
  Report Type: Spontaneous
  Country: US (occurrence: US)
  Receive Date: 20170804
  Receipt Date: 20170912
  Transmission Date: 20171127
  Serious: No
  Sender: FDA-Public Use
  Company Number: US-CELGENEUS-USA-20170800896

PATIENT
  Age: 68 Year
  Sex: Female
  Weight: 64 kg

DRUGS (5)
  1. ZOLOFT [Concomitant]
     Indication: DEPRESSION
     Route: 065
  2. TRIAMCINOLONE [Concomitant]
     Active Substance: TRIAMCINOLONE
     Indication: PSORIASIS
     Route: 061
  3. OTEZLA [Suspect]
     Active Substance: APREMILAST
     Route: 048
     Dates: start: 2017
  4. HIGH BLOOD PRESSURER [Concomitant]
     Indication: PRODUCT USED FOR UNKNOWN INDICATION
     Route: 065
  5. OTEZLA [Suspect]
     Active Substance: APREMILAST
     Indication: PSORIASIS
     Dosage: 30 MILLIGRAM
     Route: 048
     Dates: start: 201610

REACTIONS (3)
  - Appetite disorder [Recovered/Resolved]
  - Weight decreased [Recovering/Resolving]
  - Dysgeusia [Recovered/Resolved]

NARRATIVE: CASE EVENT DATE: 201705
